FAERS Safety Report 7759037-7 (Version None)
Quarter: 2011Q3

REPORT INFORMATION
  Report Type: 
  Country: None (occurrence: None)
  Receive Date: 20110919
  Receipt Date: 20110914
  Transmission Date: 20111222
  Serious: Yes (Hospitalization)
  Sender: FDA-Public Use
  Company Number: JP-BRISTOL-MYERS SQUIBB COMPANY-15956212

PATIENT
  Age: 42 Year
  Sex: Female
  Weight: 43 kg

DRUGS (11)
  1. DEXAMETHASONE [Suspect]
     Dosage: START- 3 MONTHS BEFORE ORENCIA
     Route: 048
  2. PREDNISONE [Concomitant]
     Indication: RHEUMATOID ARTHRITIS
     Dosage: START- 2 MONTHS BEFORE ORENCIA ADMINISTRATION
     Route: 048
  3. MUCOSTA [Concomitant]
     Dosage: MUCOSTA TABS
  4. PROMAC [Concomitant]
     Indication: PROPHYLAXIS AGAINST GASTROINTESTINAL ULCER
     Dosage: TABS
  5. LANSOPRAZOLE [Concomitant]
     Indication: PROPHYLAXIS AGAINST GASTROINTESTINAL ULCER
     Dosage: TABS
  6. LOXONIN [Concomitant]
     Indication: RHEUMATOID ARTHRITIS
  7. CELECOXIB [Concomitant]
     Indication: RHEUMATOID ARTHRITIS
  8. ALFACALCIDOL [Concomitant]
  9. ORENCIA [Suspect]
     Indication: RHEUMATOID ARTHRITIS
     Dosage: 24DEC10,07JAN11,04FEB11,04MAR11,31MAR11,27APR11,20MAY11,24JUN11.
     Route: 041
     Dates: start: 20101210
  10. DICLOFENAC SODIUM [Concomitant]
     Indication: RHEUMATOID ARTHRITIS
     Dosage: CAPS
  11. ETANERCEPT [Concomitant]
     Dates: end: 20101008

REACTIONS (2)
  - DIZZINESS [None]
  - ALTERED STATE OF CONSCIOUSNESS [None]
